FAERS Safety Report 5603220-3 (Version None)
Quarter: 2008Q1

REPORT INFORMATION
  Report Type: 
  Country: None (occurrence: None)
  Receive Date: 20080125
  Receipt Date: 20080115
  Transmission Date: 20080703
  Serious: Yes (Hospitalization)
  Sender: FDA-Public Use
  Company Number: DE-PFIZER INC-2008002416

PATIENT
  Age: 44 Year
  Sex: Female
  Weight: 68 kg

DRUGS (5)
  1. GENOTROPIN [Suspect]
     Indication: HYPOPITUITARISM
     Route: 058
  2. HYDROCORTISON [Concomitant]
     Route: 048
  3. L-THYROXIN [Concomitant]
     Route: 048
  4. GABAPENTIN [Concomitant]
     Route: 048
  5. CALCIUM ^SANDOZ^ [Concomitant]
     Route: 048

REACTIONS (2)
  - CONDITION AGGRAVATED [None]
  - PITUITARY-DEPENDENT CUSHING'S SYNDROME [None]
